FAERS Safety Report 9069772 (Version 1)
Quarter: 2013Q1

REPORT INFORMATION
  Report Type: Spontaneous
  Country: US (occurrence: US)
  Receive Date: 20130215
  Receipt Date: 20130215
  Transmission Date: 20140127
  Serious: Yes (Other)
  Sender: FDA-Public Use
  Company Number: US-PFIZER INC-2013056203

PATIENT
  Age: 63 Year
  Sex: Male
  Weight: 73.47 kg

DRUGS (1)
  1. XYNTHA SOLOFUSE [Suspect]
     Dosage: 28 IU/KG, WEEKLY (2X/WEEK)

REACTIONS (3)
  - Haemorrhage [Unknown]
  - Joint injury [Unknown]
  - Off label use [Unknown]
